FAERS Safety Report 6335690-X (Version None)
Quarter: 2009Q3

REPORT INFORMATION
  Report Type: 
  Country: None (occurrence: None)
  Receive Date: 20090828
  Receipt Date: 20090811
  Transmission Date: 20100115
  Serious: Yes (Hospitalization)
  Sender: FDA-Public Use
  Company Number: 2008-179132-NL

PATIENT
  Age: 39 Year
  Sex: Female
  Weight: 83.9 kg

DRUGS (4)
  1. NUVARING [Suspect]
     Indication: MENSTRUAL CYCLE MANAGEMENT
     Dosage: 1 DF; QM; VAG
     Route: 067
     Dates: start: 20070301, end: 20070901
  2. NUVARING [Suspect]
     Indication: PREMATURE MENOPAUSE
     Dosage: 1 DF; QM; VAG
     Route: 067
     Dates: start: 20070301, end: 20070901
  3. NORCO [Concomitant]
  4. IBUPROFEN [Concomitant]

REACTIONS (18)
  - ATELECTASIS [None]
  - DEEP VEIN THROMBOSIS [None]
  - DIZZINESS [None]
  - ELECTROCARDIOGRAM T WAVE ABNORMAL [None]
  - EXTRASKELETAL OSSIFICATION [None]
  - FALL [None]
  - JOINT DISLOCATION [None]
  - LEUKOCYTOSIS [None]
  - OEDEMA PERIPHERAL [None]
  - ORTHOPNOEA [None]
  - PULMONARY EMBOLISM [None]
  - PULMONARY INFARCTION [None]
  - SINUS TACHYCARDIA [None]
  - SKIN DISCOLOURATION [None]
  - ULNAR NERVE INJURY [None]
  - UPPER LIMB FRACTURE [None]
  - VOMITING [None]
  - WAIST CIRCUMFERENCE INCREASED [None]
